FAERS Safety Report 10682450 (Version 1)
Quarter: 2014Q4

REPORT INFORMATION
  Report Type: Spontaneous
  Country: DE (occurrence: DE)
  Receive Date: 20141230
  Receipt Date: 20141230
  Transmission Date: 20150529
  Serious: Yes (Hospitalization)
  Sender: FDA-Public Use
  Company Number: DE-AMGEN-DEUSP2014100956

PATIENT
  Age: 70 Year
  Sex: Female

DRUGS (3)
  1. CALCIMED                           /00008004/ [Concomitant]
     Dosage: UNK UNK, QD
  2. PROLIA [Suspect]
     Active Substance: DENOSUMAB
     Indication: PRODUCT USED FOR UNKNOWN INDICATION
     Route: 065
  3. MOVICOL                            /01749801/ [Concomitant]
     Dosage: UNK UNK, BID

REACTIONS (2)
  - Faecaloma [Not Recovered/Not Resolved]
  - Abdominal pain [Not Recovered/Not Resolved]

NARRATIVE: CASE EVENT DATE: 201411
